FAERS Safety Report 14747787 (Version 7)
Quarter: 2025Q3

REPORT INFORMATION
  Report Type: Report from Study
  Country: IL (occurrence: IL)
  Receive Date: 20180411
  Receipt Date: 20250709
  Transmission Date: 20251020
  Serious: Yes (Hospitalization, Other)
  Sender: NOVARTIS
  Company Number: PHHY2018IL001616

PATIENT
  Age: 2 Year
  Sex: Male
  Weight: 15.5 kg

DRUGS (6)
  1. EXJADE [Suspect]
     Active Substance: DEFERASIROX
     Indication: Thalassaemia
     Dosage: 500 MG, QD
     Route: 048
     Dates: start: 20170919
  2. EXJADE [Suspect]
     Active Substance: DEFERASIROX
     Dosage: 250 MG, QD
     Route: 048
  3. EXJADE [Suspect]
     Active Substance: DEFERASIROX
     Dosage: 375 MG, QD
     Route: 048
  4. EXJADE [Suspect]
     Active Substance: DEFERASIROX
     Route: 048
     Dates: end: 20190924
  5. FOLIC ACID [Concomitant]
     Active Substance: FOLIC ACID
     Indication: Product used for unknown indication
     Route: 065
  6. FERRIPROX [Concomitant]
     Active Substance: DEFERIPRONE
     Indication: Product used for unknown indication
     Dosage: 375 MG, TID
     Route: 065

REACTIONS (14)
  - Illness [Unknown]
  - Vomiting [Not Recovered/Not Resolved]
  - Diarrhoea [Not Recovered/Not Resolved]
  - Nephrolithiasis [Not Recovered/Not Resolved]
  - Haematuria [Not Recovered/Not Resolved]
  - Renal impairment [Unknown]
  - Chromaturia [Unknown]
  - Dysuria [Unknown]
  - Urine output increased [Unknown]
  - Upper respiratory tract infection [Unknown]
  - Inflammation [Recovered/Resolved]
  - Eye infection viral [Recovered/Resolved]
  - Dehydration [Unknown]
  - Serum ferritin increased [Unknown]

NARRATIVE: CASE EVENT DATE: 20171231
